FAERS Safety Report 8996807 (Version 1)
Quarter: 2013Q1

REPORT INFORMATION
  Report Type: Spontaneous
  Country: US (occurrence: US)
  Receive Date: 20130104
  Receipt Date: 20130104
  Transmission Date: 20140127
  Serious: Yes (Other)
  Sender: FDA-Public Use
  Company Number: US-BAYER-2012-136544

PATIENT
  Age: 72 Year
  Sex: Female
  Weight: 68.93 kg

DRUGS (5)
  1. ALEVE CAPLET/TABLET,MIDOL EXTENDED RELIEF CAPLET [Suspect]
     Indication: HEADACHE
     Dosage: 1 DF, WITH FOOD AND WATER
     Route: 048
     Dates: end: 20121228
  2. ZOLOFT [Concomitant]
     Dosage: UNK
  3. BUSPAR [Concomitant]
     Route: 048
  4. BUSPIRONE [Concomitant]
  5. PRILOSEC [Concomitant]

REACTIONS (5)
  - Dyspnoea [None]
  - Dyspnoea [Not Recovered/Not Resolved]
  - Tremor [Not Recovered/Not Resolved]
  - Headache [Not Recovered/Not Resolved]
  - Off label use [None]
